FAERS Safety Report 4409377-4 (Version None)
Quarter: 2004Q3

REPORT INFORMATION
  Report Type: 
  Country: None (occurrence: None)
  Receive Date: 20040723
  Receipt Date: 20040712
  Transmission Date: 20050211
  Serious: Yes (Hospitalization)
  Sender: FDA-Public Use
  Company Number: 237783

PATIENT
  Age: 67 Year
  Sex: Male
  Weight: 58 kg

DRUGS (11)
  1. NOVORAPID CHU (INSULIN ASPART) SOLUTION FOR INJECTION, 100U/MOL [Suspect]
     Indication: DIABETES MELLITUS
     Dosage: SUBCUTANEOUS
     Route: 058
     Dates: start: 20040528, end: 20040628
  2. WARFARIN SODIUM [Concomitant]
  3. ALDACTONE [Concomitant]
  4. PRAVASTATIN [Concomitant]
  5. ASPIRIN [Concomitant]
  6. LANTUS [Concomitant]
  7. HUMACART-N [Concomitant]
  8. SIGMART (NICORANDIL) [Concomitant]
  9. MAGNESIUM OXIDE (MAGNESIUM OXIDE) [Concomitant]
  10. DIGOXIN [Concomitant]
  11. VASOLATOR (GLYCERYL TRINITRATE) [Concomitant]

REACTIONS (3)
  - ALANINE AMINOTRANSFERASE INCREASED [None]
  - ASPARTATE AMINOTRANSFERASE INCREASED [None]
  - HEPATIC ENZYME INCREASED [None]
